FAERS Safety Report 14473049 (Version 6)
Quarter: 2018Q2

REPORT INFORMATION
  Report Type: Spontaneous
  Country: US (occurrence: US)
  Receive Date: 20180201
  Receipt Date: 20180615
  Transmission Date: 20180711
  Serious: No
  Sender: FDA-Public Use
  Company Number: US-BRISTOL-MYERS SQUIBB COMPANY-BMS-2018-008588

PATIENT
  Sex: Female
  Weight: 67.12 kg

DRUGS (1)
  1. ORENCIA [Suspect]
     Active Substance: ABATACEPT
     Indication: RHEUMATOID ARTHRITIS
     Dosage: 125 MG, QWK
     Route: 058
     Dates: start: 201712

REACTIONS (6)
  - Drug ineffective [Unknown]
  - Hot flush [Recovering/Resolving]
  - Weight increased [Unknown]
  - Adverse event [Unknown]
  - Abdominal distension [Unknown]
  - Pain in extremity [Unknown]
